FAERS Safety Report 15315644 (Version 1)
Quarter: 2018Q3

REPORT INFORMATION
  Report Type: Spontaneous
  Country: PT (occurrence: PT)
  Receive Date: 20180824
  Receipt Date: 20180824
  Transmission Date: 20181010
  Serious: Yes (Hospitalization)
  Sender: FDA-Public Use
  Company Number: PHHY2018PT076291

PATIENT
  Age: 13 Year
  Sex: Female

DRUGS (1)
  1. IBUPROFEN. [Suspect]
     Active Substance: IBUPROFEN
     Indication: TONSILLITIS
     Dosage: UNK
     Route: 065

REACTIONS (7)
  - Genital ulceration [Unknown]
  - Vulval ulceration [Recovered/Resolved]
  - Dysuria [Unknown]
  - Mobility decreased [Unknown]
  - Condition aggravated [Unknown]
  - Oedema genital [Unknown]
  - Genital pain [Unknown]
